FAERS Safety Report 12663945 (Version 1)
Quarter: 2016Q3

REPORT INFORMATION
  Report Type: Spontaneous
  Country: BR (occurrence: BR)
  Receive Date: 20160818
  Receipt Date: 20160818
  Transmission Date: 20161109
  Serious: Yes (Other)
  Sender: FDA-Public Use
  Company Number: BR-PFIZER INC-2016317551

PATIENT
  Age: 44 Year
  Sex: Female

DRUGS (1)
  1. SUTENT [Suspect]
     Active Substance: SUNITINIB MALATE
     Dosage: UNK
     Dates: start: 20160215

REACTIONS (9)
  - Oral pain [Unknown]
  - Type 2 diabetes mellitus [Unknown]
  - Nausea [Unknown]
  - Diarrhoea [Unknown]
  - Pain in extremity [Unknown]
  - Vomiting [Unknown]
  - Fear [Unknown]
  - Buccal mucosal roughening [Unknown]
  - Abdominal pain [Unknown]

NARRATIVE: CASE EVENT DATE: 201606
